FAERS Safety Report 18724604 (Version 1)
Quarter: 2021Q1

REPORT INFORMATION
  Report Type: Spontaneous
  Country: US (occurrence: US)
  Receive Date: 20210111
  Receipt Date: 20210111
  Transmission Date: 20210419
  Serious: Yes (Hospitalization)
  Sender: FDA-Public Use
  Company Number: None

PATIENT
  Age: 70 Year
  Sex: Male
  Weight: 51 kg

DRUGS (4)
  1. BAMLANIVIMAB. [Suspect]
     Active Substance: BAMLANIVIMAB
     Indication: COVID-19
     Dosage: ?          OTHER FREQUENCY:ONCE;?
     Route: 041
  2. AMIKACIN 1000 MG [Concomitant]
     Dates: start: 20210107
  3. CEFEPIME 2000 MG [Concomitant]
     Dates: start: 20210107
  4. FINASTERIDE 5 MG [Concomitant]
     Active Substance: FINASTERIDE
     Dates: start: 20210107

REACTIONS (3)
  - COVID-19 pneumonia [None]
  - White blood cells urine positive [None]
  - Febrile neutropenia [None]

NARRATIVE: CASE EVENT DATE: 20210107
